FAERS Safety Report 9345023 (Version 1)
Quarter: 2013Q2

REPORT INFORMATION
  Report Type: Spontaneous
  Country: NL (occurrence: NL)
  Receive Date: 20130612
  Receipt Date: 20130612
  Transmission Date: 20140414
  Serious: Yes (Other)
  Sender: FDA-Public Use
  Company Number: NL-PFIZER INC-2013171354

PATIENT
  Sex: Female

DRUGS (1)
  1. METHYLPREDNISOLONE SODIUM SUCCINATE [Suspect]
     Indication: MULTIPLE SCLEROSIS RELAPSE
     Dosage: 1000 MG FOR 3 DAYS
     Route: 042
     Dates: start: 1998

REACTIONS (1)
  - Drug-induced liver injury [Recovered/Resolved]
